FAERS Safety Report 18635434 (Version 1)
Quarter: 2020Q4

REPORT INFORMATION
  Report Type: Spontaneous
  Country: CN (occurrence: CN)
  Receive Date: 20201218
  Receipt Date: 20201218
  Transmission Date: 20210114
  Serious: Yes (Hospitalization)
  Sender: FDA-Public Use
  Company Number: CN-BAXTER-2020BAX025829

PATIENT
  Age: 10 Year
  Sex: Female
  Weight: 31 kg

DRUGS (2)
  1. HOLOXAN [Suspect]
     Active Substance: IFOSFAMIDE
     Indication: CHONDROSARCOMA
     Dosage: HOLOXAN + NS (500 ML)
     Route: 041
     Dates: start: 20201102, end: 20201106
  2. 0.9% SODIUM CHLORIDE INJECTION [Suspect]
     Active Substance: SODIUM CHLORIDE
     Indication: MEDICATION DILUTION
     Dosage: NS + HOLOXAN (2 G)
     Route: 041
     Dates: start: 20201102, end: 20201106

REACTIONS (1)
  - Myelosuppression [Recovering/Resolving]

NARRATIVE: CASE EVENT DATE: 20201111
